FAERS Safety Report 8223686-2 (Version None)
Quarter: 2012Q1

REPORT INFORMATION
  Report Type: 
  Country: None (occurrence: None)
  Receive Date: 20120316
  Receipt Date: 20120312
  Transmission Date: 20120608
  Serious: Yes (Hospitalization)
  Sender: FDA-Public Use
  Company Number: WAES 1203USA00907

PATIENT
  Age: 49 Year
  Sex: Male

DRUGS (1)
  1. CAP VORINOSTAT [Suspect]
     Indication: MYCOSIS FUNGOIDES
     Dosage: 400 MG/DAILY PO
     Route: 048
     Dates: end: 20120227

REACTIONS (6)
  - RESPIRATORY FAILURE [None]
  - ABDOMINAL PAIN [None]
  - GASTROINTESTINAL DISORDER [None]
  - ACUTE ABDOMEN [None]
  - GASTROINTESTINAL NEOPLASM [None]
  - PNEUMONIA [None]
